FAERS Safety Report 4694083-1 (Version None)
Quarter: 2005Q2

REPORT INFORMATION
  Report Type: 
  Country: None (occurrence: None)
  Receive Date: 20050616
  Receipt Date: 20050607
  Transmission Date: 20051028
  Serious: Yes (Congenital Anomaly, Other)
  Sender: FDA-Public Use
  Company Number: 2005085985

PATIENT

DRUGS (1)
  1. LIPITOR [Suspect]
     Indication: ILL-DEFINED DISORDER

REACTIONS (3)
  - CONGENITAL BRAIN DAMAGE [None]
  - DRUG EXPOSURE DURING PREGNANCY [None]
  - POOR QUALITY DRUG ADMINISTERED [None]
